FAERS Safety Report 5889879-4 (Version None)
Quarter: 2008Q3

REPORT INFORMATION
  Report Type: 
  Country: None (occurrence: None)
  Receive Date: 20080919
  Receipt Date: 20080915
  Transmission Date: 20090109
  Serious: Yes (Life-Threatening, Hospitalization)
  Sender: FDA-Public Use
  Company Number: US-WYE-H05994208

PATIENT
  Sex: Male
  Weight: 104.42 kg

DRUGS (10)
  1. TORISEL [Suspect]
     Indication: ADENOCARCINOMA PANCREAS
     Route: 042
     Dates: start: 20080905, end: 20080912
  2. COMPAZINE [Concomitant]
     Indication: NAUSEA
     Dosage: NOT PROVIDED
     Route: 065
     Dates: start: 20080905
  3. ASPIRIN [Concomitant]
     Indication: PAIN
     Dosage: NOT PROVIDED
     Route: 065
     Dates: start: 20080813
  4. ZOFRAN [Concomitant]
     Indication: NAUSEA
     Dosage: NOT PROVIDED
     Route: 065
     Dates: start: 20080905
  5. NADOLOL [Concomitant]
     Indication: HYPERTENSION
     Dosage: NOT PROVIDED
     Route: 065
     Dates: start: 20080813
  6. OMEPRAZOLE [Concomitant]
     Indication: DYSPEPSIA
     Dosage: NOT PROVIDED
     Route: 065
     Dates: start: 20080813
  7. OXYCONTIN [Concomitant]
     Indication: PAIN
     Dosage: NOT PROVIDED
     Route: 065
     Dates: start: 20080822
  8. PERCOCET [Concomitant]
     Indication: PAIN
     Dosage: NOT PROVIDED
     Route: 065
     Dates: start: 20080813
  9. GEMCITABINE HCL [Suspect]
     Indication: ADENOCARCINOMA PANCREAS
     Dosage: NOT PROVIDED
     Route: 065
     Dates: start: 20080905
  10. CREON [Concomitant]
     Indication: MALABSORPTION
     Dosage: NOT PROVIDED
     Route: 065
     Dates: start: 20080813

REACTIONS (1)
  - NEUTROPENIA [None]
